FAERS Safety Report 16873815 (Version 1)
Quarter: 2019Q4

REPORT INFORMATION
  Report Type: Spontaneous
  Country: US (occurrence: US)
  Receive Date: 20191001
  Receipt Date: 20191001
  Transmission Date: 20200122
  Serious: Yes (Death, Other)
  Sender: FDA-Public Use
  Company Number: US-AMGEN-USASP2019158021

PATIENT

DRUGS (1)
  1. EPOETIN ALFA [Suspect]
     Active Substance: ERYTHROPOIETIN
     Indication: CHRONIC KIDNEY DISEASE
     Dosage: UNK
     Route: 065

REACTIONS (27)
  - Poisoning [Unknown]
  - Musculoskeletal disorder [Unknown]
  - Reproductive tract disorder [Unknown]
  - Cardiac disorder [Unknown]
  - Metabolic disorder [Unknown]
  - Renal disorder [Unknown]
  - Eye disorder [Unknown]
  - Respiratory disorder [Unknown]
  - Hepatobiliary disease [Unknown]
  - Infection [Unknown]
  - Injury [Unknown]
  - Faeces discoloured [Unknown]
  - Diarrhoea [Unknown]
  - Immune system disorder [Unknown]
  - Skin disorder [Unknown]
  - Lymphatic disorder [Unknown]
  - Death [Fatal]
  - Neoplasm [Unknown]
  - Angiopathy [Unknown]
  - Infestation [Unknown]
  - Constipation [Unknown]
  - Blood disorder [Unknown]
  - Endocrine disorder [Unknown]
  - Mental disorder [Unknown]
  - Nervous system disorder [Unknown]
  - Ill-defined disorder [Unknown]
  - Investigation abnormal [Unknown]
